FAERS Safety Report 4583035-8 (Version None)
Quarter: 2005Q1

REPORT INFORMATION
  Report Type: 
  Country: None (occurrence: None)
  Receive Date: 20050125
  Receipt Date: 20041115
  Transmission Date: 20050727
  Serious: No
  Sender: FDA-Public Use
  Company Number: US_0411108340

PATIENT
  Age: 72 Year
  Sex: Female

DRUGS (2)
  1. FORTEO [Suspect]
     Indication: OSTEOPOROSIS
     Dates: start: 20041001
  2. EVISTA [Suspect]
     Indication: OSTEOPOROSIS
     Dates: start: 20010101, end: 20040930

REACTIONS (3)
  - BONE PAIN [None]
  - DRUG INEFFECTIVE [None]
  - MYALGIA [None]
